FAERS Safety Report 22181483 (Version 1)
Quarter: 2023Q2

REPORT INFORMATION
  Report Type: Spontaneous
  Country: US (occurrence: US)
  Receive Date: 20230406
  Receipt Date: 20230406
  Transmission Date: 20230721
  Serious: No
  Sender: FDA-Public Use
  Company Number: US-AMRYT PHARMACEUTICALS DAC-AEGR006288

PATIENT
  Sex: Female

DRUGS (1)
  1. MYCAPSSA [Suspect]
     Active Substance: OCTREOTIDE
     Indication: Acromegaly
     Dosage: 40 MILLIGRAM, BID

REACTIONS (5)
  - Weight increased [Unknown]
  - Insulin-like growth factor increased [Unknown]
  - Inhibitory drug interaction [Unknown]
  - Off label use [Unknown]
  - Drug ineffective [Unknown]
